FAERS Safety Report 15101665 (Version 1)
Quarter: 2018Q3

REPORT INFORMATION
  Report Type: Report from Study
  Country: AU (occurrence: AU)
  Receive Date: 20180703
  Receipt Date: 20180703
  Transmission Date: 20181010
  Serious: Yes (Other)
  Sender: FDA-Public Use
  Company Number: AU-ELI_LILLY_AND_COMPANY-AU201806009417

PATIENT
  Age: 48 Year
  Sex: Male
  Weight: 99.6 kg

DRUGS (2)
  1. BARICITINIB [Suspect]
     Active Substance: BARICITINIB
     Indication: DERMATITIS ATOPIC
     Dosage: 1 MG, DAILY
     Route: 048
     Dates: start: 20180613, end: 20180618
  2. MULTI VITAMIN ONE A DAY [Concomitant]
     Dosage: UNK

REACTIONS (1)
  - Drug eruption [Recovered/Resolved]

NARRATIVE: CASE EVENT DATE: 20180614
